FAERS Safety Report 9265122 (Version 1)
Quarter: 2013Q2

REPORT INFORMATION
  Report Type: Spontaneous
  Country: US (occurrence: US)
  Receive Date: 20130501
  Receipt Date: 20130501
  Transmission Date: 20140414
  Serious: No
  Sender: FDA-Public Use
  Company Number: US-PFIZER INC-2013131685

PATIENT
  Sex: Female

DRUGS (5)
  1. LEVOXYL [Suspect]
     Indication: AUTOIMMUNE THYROIDITIS
     Dosage: 75 MCG, 1X/DAY FOR SIX DAYS AND HALF TABLET OF 75MCG ON THE SEVENTH DAY OF WEEK
     Route: 048
     Dates: start: 201301, end: 201301
  2. LEVOXYL [Suspect]
     Dosage: 75MCG ONCE A DAY FOR SIX DAYS AND HALF TABLET OF 75MCG TWO TIMES A DAY ON THE SEVENTH DAY OF WEEK
     Route: 048
     Dates: start: 201301
  3. LEVOXYL [Suspect]
     Dosage: 75 MCG, 1X/DAY FOR SIX DAYS AND HALF TABLET OF 75MCG ON THE SEVENTH DAY OF WEEK
     Route: 048
  4. LEVOXYL [Suspect]
     Dosage: 75 UG, UNK
     Route: 048
  5. ADVIL [Concomitant]
     Indication: PAIN
     Dosage: UNK

REACTIONS (2)
  - Hypothyroidism [Unknown]
  - Blood thyroid stimulating hormone abnormal [Unknown]
